FAERS Safety Report 6829800-5 (Version None)
Quarter: 2010Q3

REPORT INFORMATION
  Report Type: 
  Country: None (occurrence: None)
  Receive Date: 20100709
  Receipt Date: 20090914
  Transmission Date: 20110219
  Serious: No
  Sender: FDA-Public Use
  Company Number: US-PFIZER INC-2007010656

PATIENT
  Sex: Female

DRUGS (4)
  1. CHANTIX [Suspect]
     Dosage: UNK
     Route: 048
     Dates: start: 20070101
  2. PIROXICAM [Concomitant]
     Indication: HYPERTENSION
     Dosage: UNK
  3. HYDROCHLOROTHIAZIDE [Concomitant]
     Dosage: UNK
  4. LISINOPRIL [Concomitant]
     Dosage: UNK

REACTIONS (9)
  - ABDOMINAL DISCOMFORT [None]
  - BACK PAIN [None]
  - DYSPNOEA [None]
  - FEELING ABNORMAL [None]
  - GASTRIC DISORDER [None]
  - INSOMNIA [None]
  - MUSCLE SPASMS [None]
  - NAUSEA [None]
  - WEIGHT INCREASED [None]
